FAERS Safety Report 19938279 (Version 3)
Quarter: 2021Q4

REPORT INFORMATION
  Report Type: Spontaneous
  Country: ES (occurrence: ES)
  Receive Date: 20211011
  Receipt Date: 20211102
  Transmission Date: 20220304
  Serious: Yes (Other)
  Sender: FDA-Public Use
  Company Number: ES-LUPIN PHARMACEUTICALS INC.-2021-19123

PATIENT
  Age: 56 Year
  Sex: Female

DRUGS (4)
  1. CLOBETASOL [Suspect]
     Active Substance: CLOBETASOL
     Indication: Pyoderma gangrenosum
     Dosage: 0.5 MILLIGRAM PER GRAM, QD (EVERY 24 H)
     Route: 061
  2. TRIAMCINOLONE ACETONIDE [Suspect]
     Active Substance: TRIAMCINOLONE ACETONIDE
     Indication: Pyoderma gangrenosum
     Dosage: 40 MILLIGRAM PER MILLILITRE (WHICH WAS INFILTRATED EVERY 15 DAYS)
     Route: 061
  3. TACROLIMUS [Suspect]
     Active Substance: TACROLIMUS
     Indication: Pyoderma gangrenosum
     Dosage: 0.1 PERCENT, QD (EVERY 24 HOURS)
     Route: 061
  4. PREDNISOLONE [Suspect]
     Active Substance: PREDNISOLONE
     Indication: Pyoderma gangrenosum
     Dosage: 30 MILLIGRAM, QD
     Route: 048

REACTIONS (1)
  - Drug ineffective [Unknown]
